FAERS Safety Report 12341059 (Version 1)
Quarter: 2016Q2

REPORT INFORMATION
  Report Type: Spontaneous
  Country: US (occurrence: US)
  Receive Date: 20160506
  Receipt Date: 20160506
  Transmission Date: 20160815
  Serious: No
  Sender: FDA-Public Use
  Company Number: US-BAUSCH-BL-2015-018753

PATIENT
  Sex: Female

DRUGS (1)
  1. OFLOXACIN OTIC [Suspect]
     Active Substance: OFLOXACIN
     Indication: EYE INFECTION
     Dosage: 1 DROP INTO EACH EYE
     Route: 047
     Dates: start: 201507, end: 201507

REACTIONS (2)
  - Drug dispensing error [Unknown]
  - Vision blurred [Unknown]

NARRATIVE: CASE EVENT DATE: 201507
